FAERS Safety Report 7905876-9 (Version None)
Quarter: 2011Q4

REPORT INFORMATION
  Report Type: 
  Country: None (occurrence: None)
  Receive Date: 20111110
  Receipt Date: 20111108
  Transmission Date: 20120403
  Serious: Yes (Hospitalization, Other)
  Sender: FDA-Public Use
  Company Number: US-PFIZER INC-2011244409

PATIENT
  Sex: Male
  Weight: 116 kg

DRUGS (4)
  1. PHENYTOIN [Suspect]
     Indication: CONVULSION
  2. PHENYTOIN [Suspect]
     Indication: INJURY
     Dosage: UNK
     Dates: start: 19960101, end: 19960101
  3. DILANTIN-125 [Suspect]
     Indication: CONVULSION
     Dosage: 100 MG, UNK
  4. DILANTIN-125 [Suspect]
     Indication: INJURY
     Dosage: UNK
     Dates: start: 19960101

REACTIONS (4)
  - CONVULSION [None]
  - ENAMEL ANOMALY [None]
  - TOOTH EXTRACTION [None]
  - GINGIVAL DISORDER [None]
